FAERS Safety Report 17056201 (Version 1)
Quarter: 2019Q4

REPORT INFORMATION
  Report Type: Spontaneous
  Country: US (occurrence: US)
  Receive Date: 20191121
  Receipt Date: 20191121
  Transmission Date: 20200122
  Serious: Yes (Disabling, Other)
  Sender: FDA-Public Use
  Company Number: US-ROCHE-2468439

PATIENT
  Age: 52 Year
  Sex: Female

DRUGS (1)
  1. RITUXAN [Suspect]
     Active Substance: RITUXIMAB
     Indication: MULTIPLE SCLEROSIS
     Dosage: DAY 1 AND DAY 15 EVERY 6 HOURS? LAST DOSE WAS ON 22/OCT/2019
     Route: 042
     Dates: start: 20170824

REACTIONS (6)
  - Neoplasm [Recovering/Resolving]
  - Drug ineffective [Unknown]
  - Off label use [Unknown]
  - Disease progression [Unknown]
  - Intentional product use issue [Unknown]
  - Multiple sclerosis relapse [Recovering/Resolving]

NARRATIVE: CASE EVENT DATE: 20190909
